FAERS Safety Report 4929652-4 (Version None)
Quarter: 2006Q1

REPORT INFORMATION
  Report Type: 
  Country: None (occurrence: None)
  Receive Date: 20060224
  Receipt Date: 20060215
  Transmission Date: 20060701
  Serious: Yes (Other)
  Sender: FDA-Public Use
  Company Number: 2006022998

PATIENT
  Age: 79 Year
  Sex: Male
  Weight: 77.1115 kg

DRUGS (7)
  1. LIPITOR [Suspect]
     Indication: BLOOD CHOLESTEROL INCREASED
     Dosage: 10 MG (10 MG, 1 IN 1 D), ORAL
     Route: 048
     Dates: end: 20060214
  2. LEVOXYL [Concomitant]
  3. PRILOSEC [Concomitant]
  4. NORVASC [Concomitant]
  5. ATROVENT [Concomitant]
  6. XANAX [Concomitant]
  7. ASPIRIN [Concomitant]

REACTIONS (5)
  - ASTHENIA [None]
  - COLONIC POLYP [None]
  - DIFFICULTY IN WALKING [None]
  - MYALGIA [None]
  - SQUAMOUS CELL CARCINOMA [None]
